FAERS Safety Report 9995618 (Version 1)
Quarter: 2014Q1

REPORT INFORMATION
  Report Type: Spontaneous
  Country: US (occurrence: None)
  Receive Date: 20140304
  Receipt Date: 20140304
  Transmission Date: 20141002
  Serious: Yes (Hospitalization, Other)
  Sender: FDA-Public Use
  Company Number: RB-54355-2013

PATIENT
  Sex: Female

DRUGS (2)
  1. BUPRENORPHINE [Suspect]
     Indication: DRUG DEPENDENCE
     Route: 064
     Dates: start: 201206, end: 20130115
  2. OPIOIDS [Suspect]
     Indication: DRUG DEPENDENCE
     Dosage: DOSING DETAILS UNKNOWN, TRANSPLACENTAL
     Route: 064
     Dates: start: 201204, end: 201206

REACTIONS (4)
  - Foetal exposure during pregnancy [None]
  - Drug withdrawal syndrome neonatal [None]
  - Feeding disorder neonatal [None]
  - Gastrooesophageal reflux disease [None]
